FAERS Safety Report 5274025-0 (Version None)
Quarter: 2007Q1

REPORT INFORMATION
  Report Type: 
  Country: None (occurrence: None)
  Receive Date: 20070323
  Receipt Date: 20070315
  Transmission Date: 20070707
  Serious: Yes (Hospitalization)
  Sender: FDA-Public Use
  Company Number: US-KINGPHARMUSA00001-K200700316

PATIENT

DRUGS (1)
  1. ALTACE [Suspect]
     Route: 048

REACTIONS (1)
  - UNEVALUABLE EVENT [None]
